FAERS Safety Report 22204007 (Version 2)
Quarter: 2023Q2

REPORT INFORMATION
  Report Type: Spontaneous
  Country: JP (occurrence: JP)
  Receive Date: 20230412
  Receipt Date: 20230425
  Transmission Date: 20230722
  Serious: Yes (Death, Hospitalization, Other)
  Sender: FDA-Public Use
  Company Number: JP-MSD-M2023-13816

PATIENT
  Age: 81 Year
  Sex: Female
  Weight: 38 kg

DRUGS (4)
  1. KEYTRUDA [Suspect]
     Active Substance: PEMBROLIZUMAB
     Indication: Triple negative breast cancer
     Dosage: 200 MILLIGRAM, Q3W
     Route: 041
     Dates: start: 20230307, end: 20230307
  2. PACLITAXEL [Suspect]
     Active Substance: PACLITAXEL
     Dosage: UNK
     Route: 041
     Dates: start: 20230307, end: 20230307
  3. PACLITAXEL [Suspect]
     Active Substance: PACLITAXEL
     Dosage: UNK
     Route: 041
     Dates: start: 20230314, end: 202303
  4. DENOSUMAB [Suspect]
     Active Substance: DENOSUMAB
     Indication: Bone lesion
     Dosage: 120 MILLIGRAM, EVERY 4 WEEKS
     Route: 058
     Dates: start: 202303

REACTIONS (6)
  - Depressed level of consciousness [Recovering/Resolving]
  - Delirium [Unknown]
  - Hypocalcaemia [Recovering/Resolving]
  - Hyponatraemia [Recovering/Resolving]
  - Dehydration [Recovering/Resolving]
  - Malignant neoplasm progression [Fatal]

NARRATIVE: CASE EVENT DATE: 20230327
